FAERS Safety Report 19011590 (Version 1)
Quarter: 2021Q1

REPORT INFORMATION
  Report Type: Spontaneous
  Country: US (occurrence: US)
  Receive Date: 20210316
  Receipt Date: 20210316
  Transmission Date: 20210420
  Serious: Yes (Hospitalization, Other)
  Sender: FDA-Public Use
  Company Number: US-AMGEN-USASP2021038861

PATIENT

DRUGS (1)
  1. IVABRADINE [Suspect]
     Active Substance: IVABRADINE
     Indication: SINUS TACHYCARDIA
     Dosage: UNK
     Route: 065

REACTIONS (6)
  - Cardiac pacemaker insertion [Unknown]
  - Pleural effusion [Unknown]
  - Pneumothorax [Unknown]
  - Bradycardia [Unknown]
  - Off label use [Unknown]
  - Pericarditis [Unknown]
